FAERS Safety Report 4280178-3 (Version None)
Quarter: 2004Q1

REPORT INFORMATION
  Report Type: 
  Country: None (occurrence: None)
  Receive Date: 20040128
  Receipt Date: 19991112
  Transmission Date: 20041129
  Serious: Yes (Death, Life-Threatening, Hospitalization)
  Sender: FDA-Public Use
  Company Number: US-GLAXOSMITHKLINE-A0315754A

PATIENT
  Age: 49 Year
  Sex: Male

DRUGS (3)
  1. AVANDIA [Suspect]
     Dosage: 4MG PER DAY
     Route: 048
     Dates: start: 19990101, end: 19990101
  2. LIPITOR [Concomitant]
     Dosage: 80MG PER DAY
     Route: 048
  3. METHOTREXATE [Concomitant]
     Dosage: 2.5MG THREE TIMES PER DAY

REACTIONS (11)
  - ACUTE MYOCARDIAL INFARCTION [None]
  - ASCITES [None]
  - ASPARTATE AMINOTRANSFERASE INCREASED [None]
  - BLOOD ALKALINE PHOSPHATASE INCREASED [None]
  - BLOOD BILIRUBIN INCREASED [None]
  - CARDIAC ARREST [None]
  - HEPATIC FAILURE [None]
  - JAUNDICE [None]
  - OEDEMA [None]
  - ORTHOSTATIC HYPOTENSION [None]
  - VENTRICULAR TACHYCARDIA [None]
